FAERS Safety Report 20615895 (Version 6)
Quarter: 2023Q2

REPORT INFORMATION
  Report Type: Other
  Country: DE (occurrence: None)
  Receive Date: 20220321
  Receipt Date: 20230522
  Transmission Date: 20230722
  Serious: No
  Sender: FDA-Public Use
  Company Number: DE-ROCHE-3048049

PATIENT
  Age: 25 Year
  Sex: Female
  Weight: 52 kg

DRUGS (4)
  1. OCRELIZUMAB [Suspect]
     Active Substance: OCRELIZUMAB
     Indication: Relapsing multiple sclerosis
     Route: 042
     Dates: start: 20200709, end: 20200723
  2. OCRELIZUMAB [Suspect]
     Active Substance: OCRELIZUMAB
     Route: 042
     Dates: start: 20210126, end: 20210126
  3. DIMETHINDENE [Concomitant]
     Active Substance: DIMETHINDENE
     Indication: Rash
     Route: 048
     Dates: start: 20200709, end: 20200709
  4. DIENOGEST [Concomitant]
     Active Substance: DIENOGEST
     Indication: Contraception
     Route: 048

REACTIONS (3)
  - Oral herpes [Recovered/Resolved]
  - Genital herpes [Recovered/Resolved]
  - Urinary tract infection [Recovered/Resolved]

NARRATIVE: CASE EVENT DATE: 20210601
